FAERS Safety Report 16528441 (Version 1)
Quarter: 2019Q3

REPORT INFORMATION
  Report Type: Report from Study
  Country: US (occurrence: US)
  Receive Date: 20190703
  Receipt Date: 20190703
  Transmission Date: 20191004
  Serious: Yes (Death, Other)
  Sender: FDA-Public Use
  Company Number: US-ASTRAZENECA-2017SE86068

PATIENT
  Age: 819 Month
  Sex: Female
  Weight: 34 kg

DRUGS (1)
  1. SYMBICORT [Suspect]
     Active Substance: BUDESONIDE\FORMOTEROL FUMARATE DIHYDRATE
     Indication: CHRONIC OBSTRUCTIVE PULMONARY DISEASE
     Dosage: 160/4.5 MCG, 2 PUFFS TWICE DAILY
     Route: 055
     Dates: start: 2010

REACTIONS (6)
  - Product dose omission [Not Recovered/Not Resolved]
  - Ear discomfort [Unknown]
  - Death [Fatal]
  - Dyspnoea [Unknown]
  - Weight decreased [Not Recovered/Not Resolved]
  - Lung carcinoma cell type unspecified stage III [Unknown]

NARRATIVE: CASE EVENT DATE: 201702
